FAERS Safety Report 17026560 (Version 1)
Quarter: 2019Q4

REPORT INFORMATION
  Report Type: Spontaneous
  Country: CN (occurrence: CN)
  Receive Date: 20191113
  Receipt Date: 20191113
  Transmission Date: 20200122
  Serious: Yes (Other)
  Sender: FDA-Public Use
  Company Number: CN-PFIZER INC-2019485255

PATIENT
  Sex: Female
  Weight: 48 kg

DRUGS (1)
  1. ZITHROMAX [Suspect]
     Active Substance: AZITHROMYCIN DIHYDRATE
     Indication: UPPER RESPIRATORY TRACT INFECTION
     Dosage: 0.5 UG, 1X/DAY
     Route: 048
     Dates: start: 20190927, end: 20190927

REACTIONS (9)
  - Chills [Recovering/Resolving]
  - Rash [Recovering/Resolving]
  - Temperature intolerance [Recovering/Resolving]
  - Face oedema [Recovering/Resolving]
  - Off label use [Unknown]
  - Product use issue [Unknown]
  - Pyrexia [Recovered/Resolved]
  - Dyspnoea [Recovered/Resolved]
  - Hypersensitivity [Unknown]

NARRATIVE: CASE EVENT DATE: 20190927
